FAERS Safety Report 9218104 (Version 1)
Quarter: 2013Q2

REPORT INFORMATION
  Report Type: Spontaneous
  Country: ID (occurrence: ID)
  Receive Date: 20130408
  Receipt Date: 20130408
  Transmission Date: 20140414
  Serious: Yes (Life-Threatening, Hospitalization)
  Sender: FDA-Public Use
  Company Number: ID-GLAXOSMITHKLINE-B0880992A

PATIENT
  Age: 70 Year
  Sex: Male

DRUGS (5)
  1. REQUIP [Suspect]
     Indication: PARKINSON^S DISEASE
     Dosage: 2MG PER DAY
     Route: 065
     Dates: start: 2013, end: 20130322
  2. LEVODOPA + BENSERAZIDE [Concomitant]
     Indication: PARKINSON^S DISEASE
     Route: 065
  3. TRIHEXYPHENIDYL [Concomitant]
     Indication: PARKINSONISM
     Route: 065
  4. RANITIDINE [Concomitant]
     Indication: GASTRIC ULCER
  5. ERYTHROMYCIN [Concomitant]
     Indication: ANTIBIOTIC THERAPY
     Dates: start: 2013, end: 20130322

REACTIONS (1)
  - Erythema multiforme [Unknown]
